FAERS Safety Report 18093826 (Version 1)
Quarter: 2020Q3

REPORT INFORMATION
  Report Type: Spontaneous
  Country: JP (occurrence: JP)
  Receive Date: 20200730
  Receipt Date: 20200730
  Transmission Date: 20201103
  Serious: Yes (Other)
  Sender: FDA-Public Use
  Company Number: JP-ASTRAZENECA-2020SE80552

PATIENT
  Age: 70 Year
  Sex: Male

DRUGS (4)
  1. TAGRISSO [Suspect]
     Active Substance: OSIMERTINIB
     Indication: NON-SMALL CELL LUNG CANCER
     Route: 048
     Dates: start: 20200615
  2. IRESSA [Suspect]
     Active Substance: GEFITINIB
     Indication: NON-SMALL CELL LUNG CANCER
     Route: 048
     Dates: start: 20180410, end: 20180516
  3. IRESSA [Suspect]
     Active Substance: GEFITINIB
     Indication: NON-SMALL CELL LUNG CANCER
     Dosage: 250 MG EVERY THIRD DAYS
     Route: 048
     Dates: start: 20180926, end: 20200304
  4. IRESSA [Suspect]
     Active Substance: GEFITINIB
     Indication: NON-SMALL CELL LUNG CANCER
     Route: 048
     Dates: start: 20180704, end: 20180925

REACTIONS (5)
  - Leukoderma [Unknown]
  - Off label use [Unknown]
  - Hepatic function abnormal [Unknown]
  - Non-small cell lung cancer recurrent [Unknown]
  - Drug tolerance [Unknown]

NARRATIVE: CASE EVENT DATE: 20180516
